FAERS Safety Report 13536068 (Version 1)
Quarter: 2017Q2

REPORT INFORMATION
  Report Type: Spontaneous
  Country: US (occurrence: US)
  Receive Date: 20170511
  Receipt Date: 20170511
  Transmission Date: 20170830
  Serious: No
  Sender: FDA-Public Use
  Company Number: US-GLENMARK PHARMACEUTICALS-2016GMK024724

PATIENT

DRUGS (1)
  1. TOPIRAMATE TABLETS 25MG [Suspect]
     Active Substance: TOPIRAMATE
     Indication: HEADACHE
     Dosage: 100 MG, QD (TWO IN THE MORNING AND TWO AT NIGHT)
     Route: 048
     Dates: end: 20161013

REACTIONS (1)
  - Off label use [Unknown]
